FAERS Safety Report 20999860 (Version 10)
Quarter: 2022Q4

REPORT INFORMATION
  Report Type: Spontaneous
  Country: US (occurrence: US)
  Receive Date: 20220623
  Receipt Date: 20221124
  Transmission Date: 20230112
  Serious: Yes (Other)
  Sender: FDA-Public Use
  Company Number: US-PFIZER INC-PV202200008107

PATIENT
  Age: 63 Year
  Sex: Female

DRUGS (4)
  1. IBRANCE [Suspect]
     Active Substance: PALBOCICLIB
     Indication: Neoplasm malignant
     Dosage: 100 MG
  2. IBRANCE [Suspect]
     Active Substance: PALBOCICLIB
     Dosage: UNK
     Dates: start: 2021
  3. IBRANCE [Suspect]
     Active Substance: PALBOCICLIB
     Dosage: UNK
     Dates: start: 20220719
  4. IBRANCE [Suspect]
     Active Substance: PALBOCICLIB
     Dosage: UNK
     Dates: start: 20221024, end: 2022

REACTIONS (18)
  - Pleural effusion [Unknown]
  - Respiratory tract congestion [Unknown]
  - Neoplasm recurrence [Unknown]
  - Headache [Unknown]
  - White blood cell count decreased [Not Recovered/Not Resolved]
  - Neutrophil count decreased [Unknown]
  - Full blood count abnormal [Unknown]
  - Dyspnoea [Unknown]
  - Fatigue [Not Recovered/Not Resolved]
  - Asthenia [Not Recovered/Not Resolved]
  - Nausea [Unknown]
  - Vomiting [Unknown]
  - Gastrooesophageal reflux disease [Unknown]
  - Myalgia [Unknown]
  - Decreased appetite [Unknown]
  - Weight decreased [Unknown]
  - Pain [Not Recovered/Not Resolved]
  - Condition aggravated [Unknown]

NARRATIVE: CASE EVENT DATE: 20210101
